FAERS Safety Report 13939251 (Version 1)
Quarter: 2017Q3

REPORT INFORMATION
  Report Type: Spontaneous
  Country: JP (occurrence: JP)
  Receive Date: 20170906
  Receipt Date: 20170906
  Transmission Date: 20171127
  Serious: Yes (Other)
  Sender: FDA-Public Use
  Company Number: JP-ASTRAZENECA-2016SE13901

PATIENT
  Age: 69 Year
  Sex: Female

DRUGS (9)
  1. NEXIUM [Suspect]
     Active Substance: ESOMEPRAZOLE MAGNESIUM
     Indication: GASTRIC ULCER
     Dosage: 20.0MG UNKNOWN
     Route: 048
     Dates: start: 201510, end: 20151217
  2. CELECOXIB. [Concomitant]
     Active Substance: CELECOXIB
     Dosage: UNKNOWN
     Route: 048
     Dates: end: 20151217
  3. OLMETEC [Concomitant]
     Active Substance: OLMESARTAN MEDOXOMIL
     Indication: RHEUMATOID ARTHRITIS
     Dosage: UNKNOWN
     Route: 048
     Dates: end: 20151217
  4. SALAZOSULFAPYRIDINE [Concomitant]
     Active Substance: SULFASALAZINE
     Indication: GASTRIC ULCER
     Dosage: UNKNOWN
     Route: 065
     Dates: start: 201510, end: 20151217
  5. NEXIUM [Suspect]
     Active Substance: ESOMEPRAZOLE MAGNESIUM
     Indication: GASTRIC ULCER
     Dosage: 20.0MG UNKNOWN
     Route: 048
     Dates: start: 20160107, end: 20160118
  6. CELECOXIB. [Concomitant]
     Active Substance: CELECOXIB
     Route: 048
     Dates: start: 20160107
  7. NIFEDIPINE. [Concomitant]
     Active Substance: NIFEDIPINE
     Indication: RHEUMATOID ARTHRITIS
     Dosage: UNKNOWN
     Route: 065
     Dates: start: 201510, end: 20151217
  8. PREDONINE [Concomitant]
     Active Substance: PREDNISOLONE
     Dosage: UNKNOWN
     Route: 048
     Dates: end: 20151217
  9. IGURATIMOD [Concomitant]
     Active Substance: IGURATIMOD
     Dates: start: 201510, end: 20151217

REACTIONS (3)
  - Rash maculo-papular [Recovered/Resolved]
  - Drug eruption [Unknown]
  - Rash [Unknown]

NARRATIVE: CASE EVENT DATE: 20151022
